FAERS Safety Report 8882407 (Version 3)
Quarter: 2012Q4

REPORT INFORMATION
  Report Type: 
  Country: FI (occurrence: FI)
  Receive Date: 20121102
  Receipt Date: 20121204
  Transmission Date: 20130627
  Serious: Yes (Hospitalization, Other)
  Sender: FDA-Public Use
  Company Number: FI-PFIZER INC-2012267370

PATIENT
  Age: 58 Year
  Sex: Male

DRUGS (1)
  1. CAVERJECT DUAL [Suspect]
     Indication: IMPOTENCE
     Dosage: 20 ug, as needed

REACTIONS (8)
  - Product quality issue [Recovered/Resolved]
  - Foreign body [Recovering/Resolving]
  - Pulmonary embolism [Unknown]
  - Cerebral infarction [Unknown]
  - Pyelonephritis [Unknown]
  - Hypertension [Unknown]
  - Oesophagitis [Unknown]
  - Device breakage [None]
